FAERS Safety Report 7935477-8 (Version None)
Quarter: 2011Q4

REPORT INFORMATION
  Report Type: 
  Country: None (occurrence: None)
  Receive Date: 20111123
  Receipt Date: 20111114
  Transmission Date: 20120403
  Serious: Yes (Life-Threatening, Hospitalization)
  Sender: FDA-Public Use
  Company Number: FR-BRISTOL-MYERS SQUIBB COMPANY-16231276

PATIENT
  Age: 81 Year
  Sex: Male

DRUGS (8)
  1. SIMVASTATIN [Concomitant]
  2. GABAPENTIN [Concomitant]
  3. BISOPROLOL FUMARATE [Concomitant]
  4. PERINDOPRIL ERBUMINE [Concomitant]
     Dosage: 1DF:1 INTAKE
  5. TAMSULOSIN HCL [Concomitant]
     Dosage: 1DF:1 UNITS NOS
  6. COUMADIN [Suspect]
     Indication: ATRIAL FLUTTER
     Dosage: 1DF:2.5 UNITS NOS
     Route: 048
  7. ASPIRIN [Suspect]
     Indication: CORONARY ARTERY BYPASS
     Dosage: POWDER FOR ORAL SOLUTION IN SINGLE DOSE SACHET
     Route: 048
  8. METFORMIN HCL [Concomitant]
     Dosage: 1DF:1000 UNITS NOS

REACTIONS (2)
  - SHOCK HAEMORRHAGIC [None]
  - SPLENIC RUPTURE [None]
